FAERS Safety Report 6568424-4 (Version None)
Quarter: 2010Q1

REPORT INFORMATION
  Report Type: 
  Country: None (occurrence: None)
  Receive Date: 20100128
  Receipt Date: 20100113
  Transmission Date: 20100710
  Serious: Yes (Death, Hospitalization, Disabling)
  Sender: FDA-Public Use
  Company Number: 2010AC000065

PATIENT
  Age: 52 Year
  Sex: Female

DRUGS (13)
  1. DIGOXIN [Suspect]
     Dosage: PO
     Route: 048
  2. INSULIN [Concomitant]
  3. ENALAPRIL MALEATE [Concomitant]
  4. GLUCOPHAGE [Concomitant]
  5. LISINOPRIL [Concomitant]
  6. NEURONTIN [Concomitant]
  7. ELAVIL [Concomitant]
  8. METOPROLOL TARTRATE [Concomitant]
  9. LASIX [Concomitant]
  10. LIPITOR [Concomitant]
  11. LORTAB [Concomitant]
  12. QUINAPRIL [Concomitant]
  13. SPIRONOLACTONE [Concomitant]

REACTIONS (21)
  - BLINDNESS [None]
  - CARDIAC FAILURE CONGESTIVE [None]
  - CEREBROVASCULAR ACCIDENT [None]
  - CONSTIPATION [None]
  - CONVULSION [None]
  - DEPRESSION [None]
  - ECONOMIC PROBLEM [None]
  - EMOTIONAL DISORDER [None]
  - FATIGUE [None]
  - LOSS OF EMPLOYMENT [None]
  - MULTIPLE INJURIES [None]
  - PAIN [None]
  - PAIN IN EXTREMITY [None]
  - RENAL FAILURE ACUTE [None]
  - REVERSIBLE POSTERIOR LEUKOENCEPHALOPATHY SYNDROME [None]
  - SKIN ULCER [None]
  - SOCIAL PROBLEM [None]
  - STASIS DERMATITIS [None]
  - SYNCOPE [None]
  - THERMAL BURN [None]
  - THYROID FUNCTION TEST ABNORMAL [None]
